FAERS Safety Report 18041539 (Version 1)
Quarter: 2020Q3

REPORT INFORMATION
  Report Type: Spontaneous
  Country: IN (occurrence: IN)
  Receive Date: 20200720
  Receipt Date: 20200720
  Transmission Date: 20201103
  Serious: Yes (Other)
  Sender: FDA-Public Use
  Company Number: IN-SUN PHARMACEUTICAL INDUSTRIES LTD-2019R1-216060

PATIENT
  Age: 12 Day
  Sex: Female
  Weight: 1.6 kg

DRUGS (2)
  1. HYDROCHLOROTHIAZIDE. [Suspect]
     Active Substance: HYDROCHLOROTHIAZIDE
     Indication: HYPERTENSION
     Dosage: 12.5MG
     Route: 064
  2. OLMESARTAN [Suspect]
     Active Substance: OLMESARTAN
     Indication: HYPERTENSION
     Dosage: 20MG
     Route: 064

REACTIONS (9)
  - Renal hypoplasia [Unknown]
  - Metabolic acidosis [Unknown]
  - Tachypnoea [Unknown]
  - Premature baby [Unknown]
  - Foetal exposure during pregnancy [Unknown]
  - Respiratory distress [Unknown]
  - Microcephaly [Unknown]
  - Renal failure [Unknown]
  - Pulmonary haemorrhage [Unknown]
